FAERS Safety Report 8520703-7 (Version None)
Quarter: 2012Q3

REPORT INFORMATION
  Report Type: 
  Country: None (occurrence: None)
  Receive Date: 20120719
  Receipt Date: 20120710
  Transmission Date: 20120928
  Serious: No
  Sender: FDA-Public Use
  Company Number: US-B.I. PHARMACEUTICALS,INC./RIDGEFIELD-2012-BP-15385BP

PATIENT
  Sex: Female

DRUGS (6)
  1. LISINOPRIL [Concomitant]
     Indication: HYPERTENSION
     Route: 048
  2. FUROSEMIDE [Concomitant]
     Indication: FLUID IMBALANCE
     Dosage: 80 MG
     Route: 048
  3. KLOR-CON [Concomitant]
     Route: 048
  4. SIMVASTATIN [Concomitant]
     Dosage: 40 MG
     Route: 048
  5. ISOSORBIDE [Concomitant]
     Indication: HYPERTENSION
     Dosage: 15 MG
     Route: 048
  6. SPIRIVA [Suspect]
     Indication: CHRONIC OBSTRUCTIVE PULMONARY DISEASE
     Dosage: 18 MCG
     Route: 055
     Dates: start: 20120401

REACTIONS (1)
  - INCORRECT ROUTE OF DRUG ADMINISTRATION [None]
